FAERS Safety Report 11059846 (Version 1)
Quarter: 2015Q2

REPORT INFORMATION
  Report Type: Spontaneous
  Country: DE (occurrence: DE)
  Receive Date: 20150423
  Receipt Date: 20150423
  Transmission Date: 20150821
  Serious: Yes (Other)
  Sender: FDA-Public Use
  Company Number: DE-BAYER-2015-133133

PATIENT
  Sex: Male

DRUGS (1)
  1. LEVITRA [Suspect]
     Active Substance: VARDENAFIL HYDROCHLORIDE TRIHYDRATE
     Dosage: 0.5 DF, ONCE
     Route: 048

REACTIONS (5)
  - Syncope [Unknown]
  - Epistaxis [Unknown]
  - Dizziness [Unknown]
  - Rhinorrhoea [Unknown]
  - Fall [Unknown]
